FAERS Safety Report 6767217-2 (Version None)
Quarter: 2010Q2

REPORT INFORMATION
  Report Type: 
  Country: None (occurrence: None)
  Receive Date: 20100611
  Receipt Date: 20100611
  Transmission Date: 20101027
  Serious: Yes (Hospitalization)
  Sender: FDA-Public Use
  Company Number: None

PATIENT
  Age: 74 Year
  Sex: Male
  Weight: 117.7 kg

DRUGS (1)
  1. WARFARIN [Suspect]
     Dosage: 7.5 MG EVERY DAY PO
     Route: 048
     Dates: start: 20090515, end: 20090522

REACTIONS (1)
  - INTERNATIONAL NORMALISED RATIO INCREASED [None]
